FAERS Safety Report 14272557 (Version 2)
Quarter: 2019Q1

REPORT INFORMATION
  Report Type: Report from Study
  Country: DE (occurrence: DE)
  Receive Date: 20171212
  Receipt Date: 20190326
  Transmission Date: 20190417
  Serious: Yes (Death, Hospitalization)
  Sender: FDA-Public Use
  Company Number: PHHO2017DE016717

PATIENT
  Age: 58 Year
  Sex: Male
  Weight: 86 kg

DRUGS (4)
  1. CYTARABINE. [Suspect]
     Active Substance: CYTARABINE
     Indication: ACUTE MYELOID LEUKAEMIA
     Dosage: 200 MG/M2, UNK
     Route: 042
     Dates: start: 20170708, end: 20170819
  2. SANDIMMUN OPTORAL [Suspect]
     Active Substance: CYCLOSPORINE
     Indication: IMMUNOSUPPRESSION
     Dosage: 150 MG, UNK
     Route: 048
     Dates: start: 20171010, end: 20171204
  3. DAUNORUBICIN [Suspect]
     Active Substance: DAUNORUBICIN
     Indication: ACUTE MYELOID LEUKAEMIA
     Dosage: 60 MG/M2, UNK
     Route: 042
     Dates: start: 20170708, end: 20170710
  4. MIDOSTAURIN [Suspect]
     Active Substance: MIDOSTAURIN
     Indication: ACUTE MYELOID LEUKAEMIA
     Dosage: 50 MG, BID
     Route: 048
     Dates: start: 20170715, end: 20171204

REACTIONS (1)
  - Lymphoproliferative disorder [Fatal]

NARRATIVE: CASE EVENT DATE: 20171128
